FAERS Safety Report 16193169 (Version 3)
Quarter: 2019Q2

REPORT INFORMATION
  Report Type: Spontaneous
  Country: US (occurrence: US)
  Receive Date: 20190413
  Receipt Date: 20190524
  Transmission Date: 20190711
  Serious: No
  Sender: FDA-Public Use
  Company Number: US-009507513-1904USA005420

PATIENT
  Age: 66 Year
  Sex: Female

DRUGS (1)
  1. PROVENTIL [Suspect]
     Active Substance: ALBUTEROL
     Indication: BRONCHITIS
     Dosage: 1 PUFF EVERY 4 HOURS AS NEEDED; ORAL INHALATION
     Route: 055
     Dates: start: 20190406

REACTIONS (5)
  - Product dose omission [Unknown]
  - Drug ineffective [Not Recovered/Not Resolved]
  - Poor quality device used [Not Recovered/Not Resolved]
  - Product quality issue [Not Recovered/Not Resolved]
  - Product use in unapproved indication [Unknown]

NARRATIVE: CASE EVENT DATE: 20190406
